FAERS Safety Report 6207883-3 (Version None)
Quarter: 2009Q2

REPORT INFORMATION
  Report Type: 
  Country: None (occurrence: None)
  Receive Date: 20090529
  Receipt Date: 20090515
  Transmission Date: 20091009
  Serious: Yes (Life-Threatening)
  Sender: FDA-Public Use
  Company Number: GB-RANBAXY-2009RR-24307

PATIENT
  Age: 48 Year
  Weight: 100 kg

DRUGS (3)
  1. CIPROFLOXACIN [Suspect]
     Indication: KIDNEY INFECTION
     Dosage: 250 MG, BID
     Route: 048
     Dates: start: 20000417, end: 20090418
  2. ACETAMINOPHEN W/ CODEINE [Concomitant]
     Dosage: 1000 MG, QID
     Route: 048
  3. TRIMETHOPRIM [Concomitant]
     Indication: KIDNEY INFECTION
     Dosage: 1 DF, BID
     Route: 048
     Dates: start: 20090402, end: 20090406

REACTIONS (1)
  - BLISTER [None]
